FAERS Safety Report 10195708 (Version 20)
Quarter: 2016Q4

REPORT INFORMATION
  Report Type: Report from Study
  Country: CA (occurrence: CA)
  Receive Date: 20140527
  Receipt Date: 20161215
  Transmission Date: 20170206
  Serious: Yes (Other)
  Sender: FDA-Public Use
  Company Number: CA-ROCHE-1094455

PATIENT
  Age: 53 Year
  Sex: Female
  Weight: 91.25 kg

DRUGS (12)
  1. ACTEMRA [Suspect]
     Active Substance: TOCILIZUMAB
     Indication: RHEUMATOID ARTHRITIS
     Route: 042
     Dates: start: 20120503
  2. CELEXA [Concomitant]
     Active Substance: CITALOPRAM HYDROBROMIDE
  3. FOLIC ACID. [Concomitant]
     Active Substance: FOLIC ACID
  4. ACTEMRA [Suspect]
     Active Substance: TOCILIZUMAB
     Route: 042
     Dates: start: 20130307
  5. ZOPICLONE [Concomitant]
     Active Substance: ZOPICLONE
  6. ACETAMINOPHEN. [Concomitant]
     Active Substance: ACETAMINOPHEN
     Route: 048
     Dates: start: 20100609, end: 20110511
  7. ACTEMRA [Suspect]
     Active Substance: TOCILIZUMAB
     Route: 042
     Dates: start: 20130808
  8. METHOTREXATE. [Concomitant]
     Active Substance: METHOTREXATE
  9. RITUXAN [Suspect]
     Active Substance: RITUXIMAB
     Indication: RHEUMATOID ARTHRITIS
     Route: 042
     Dates: start: 20100609, end: 20110511
  10. METHYLPREDNISOLONE. [Concomitant]
     Active Substance: METHYLPREDNISOLONE
     Route: 042
     Dates: start: 20100609, end: 20110511
  11. PANTOPRAZOLE [Concomitant]
     Active Substance: PANTOPRAZOLE SODIUM
  12. DIPHENHYDRAMINE HYDROCHLORIDE. [Concomitant]
     Active Substance: DIPHENHYDRAMINE HYDROCHLORIDE
     Route: 048
     Dates: start: 20100609, end: 20110511

REACTIONS (18)
  - Oral herpes [Not Recovered/Not Resolved]
  - Bone pain [Recovering/Resolving]
  - Urinary tract infection [Unknown]
  - Lower respiratory tract infection [Unknown]
  - Myalgia [Recovering/Resolving]
  - Mouth ulceration [Not Recovered/Not Resolved]
  - Drug ineffective [Unknown]
  - Musculoskeletal pain [Not Recovered/Not Resolved]
  - Pain in extremity [Unknown]
  - Vitreous floaters [Unknown]
  - Rheumatoid arthritis [Unknown]
  - Tonsillitis [Recovered/Resolved]
  - Arthralgia [Not Recovered/Not Resolved]
  - Rash [Not Recovered/Not Resolved]
  - Therapeutic response decreased [Unknown]
  - Pain [Unknown]
  - Weight decreased [Unknown]
  - Malaise [Unknown]

NARRATIVE: CASE EVENT DATE: 201210
